FAERS Safety Report 12237704 (Version 2)
Quarter: 2016Q2

REPORT INFORMATION
  Report Type: Report from Study
  Country: CZ (occurrence: CZ)
  Receive Date: 20160405
  Receipt Date: 20160520
  Transmission Date: 20160815
  Serious: Yes (Other)
  Sender: FDA-Public Use
  Company Number: CZ-BRISTOL-MYERS SQUIBB COMPANY-BMS-2016-025226

PATIENT
  Age: 66 Year
  Sex: Female
  Weight: 60 kg

DRUGS (3)
  1. DASATINIB [Suspect]
     Active Substance: DASATINIB
     Dosage: 75 MG, QD
     Route: 065
  2. DASATINIB [Suspect]
     Active Substance: DASATINIB
     Indication: PRODUCT USED FOR UNKNOWN INDICATION
     Dosage: 100 MG, UNK
     Route: 065
     Dates: start: 20141219
  3. DASATINIB [Suspect]
     Active Substance: DASATINIB
     Dosage: 75 MG, QD
     Route: 065

REACTIONS (5)
  - Angioedema [Unknown]
  - Neutropenia [Unknown]
  - Anaemia [Unknown]
  - Pleural effusion [Unknown]
  - Thrombocytopenia [Unknown]
